FAERS Safety Report 23585391 (Version 1)
Quarter: 2024Q1

REPORT INFORMATION
  Report Type: Spontaneous
  Country: DE (occurrence: DE)
  Receive Date: 20240301
  Receipt Date: 20240301
  Transmission Date: 20240410
  Serious: Yes (Hospitalization, Other)
  Sender: FDA-Public Use
  Company Number: None

PATIENT
  Age: 1 Day
  Sex: Male
  Weight: 3 kg

DRUGS (6)
  1. QUETIAPINE [Suspect]
     Active Substance: QUETIAPINE
     Indication: Product used for unknown indication
     Dosage: MOTHER DOSE: 150 [MG/D ]/ 150 MG/D, AROUND GW 33 REDUCED TO 100 MG/D
     Route: 064
  2. VENLAFAXINE [Suspect]
     Active Substance: VENLAFAXINE HYDROCHLORIDE
     Indication: Product used for unknown indication
     Dosage: MOTHER DOSE 75 [MG/D]/ SINCE 2010
     Route: 064
  3. LITHIUM CARBONATE [Suspect]
     Active Substance: LITHIUM CARBONATE
     Indication: Product used for unknown indication
     Dosage: MOTHER DOSE: 400 [MG/D]/ SINCE 2010, 200-0-200 MG/D 2 SEPARATED DOSES
     Route: 064
  4. ASPIRIN [Concomitant]
     Active Substance: ASPIRIN
     Indication: Product used for unknown indication
     Dosage: MOTHER DOSE 150 [MG/D]
     Route: 064
  5. DALTEPARIN SODIUM [Concomitant]
     Active Substance: DALTEPARIN SODIUM
     Indication: Product used for unknown indication
     Dosage: 5000 [I.E./D]
     Route: 064
  6. LEVOTHYROXINE SODIUM [Concomitant]
     Active Substance: LEVOTHYROXINE SODIUM
     Indication: Product used for unknown indication
     Dosage: 100 [G/D ]/ SINCE 2016
     Route: 064

REACTIONS (7)
  - Atrial septal defect [Unknown]
  - Foetal exposure during pregnancy [Unknown]
  - Opisthotonus [Recovering/Resolving]
  - Oxygen saturation decreased [Recovered/Resolved]
  - Myoclonus [Recovering/Resolving]
  - Agitation neonatal [Recovering/Resolving]
  - Bradycardia neonatal [Recovered/Resolved]

NARRATIVE: CASE EVENT DATE: 20230301
